FAERS Safety Report 10089165 (Version 1)
Quarter: 2014Q2

REPORT INFORMATION
  Report Type: Spontaneous
  Country: US (occurrence: US)
  Receive Date: 20140421
  Receipt Date: 20140421
  Transmission Date: 20141212
  Serious: No
  Sender: FDA-Public Use
  Company Number: US-DRREDDYS-USA/USA/14/0038510

PATIENT
  Age: 29 Year
  Sex: Female

DRUGS (3)
  1. ZENATANE [Suspect]
     Indication: ACNE
     Route: 048
     Dates: start: 201312
  2. ZENATANE [Suspect]
     Route: 048
     Dates: start: 201401
  3. ZENATANE [Suspect]
     Route: 048
     Dates: start: 201402

REACTIONS (1)
  - Migraine [Recovered/Resolved]
